FAERS Safety Report 25941535 (Version 1)
Quarter: 2025Q4

REPORT INFORMATION
  Report Type: Spontaneous
  Country: US (occurrence: US)
  Receive Date: 20251020
  Receipt Date: 20251020
  Transmission Date: 20260118
  Serious: Yes (Other)
  Sender: AMGEN
  Company Number: US-AMGEN-USASP2025205421

PATIENT

DRUGS (2)
  1. PROLIA [Suspect]
     Active Substance: DENOSUMAB
     Indication: Osteoporosis
     Dosage: UNK
     Route: 065
  2. ROMOSOZUMAB [Suspect]
     Active Substance: ROMOSOZUMAB
     Indication: Osteoporosis
     Dosage: UNK
     Route: 065

REACTIONS (12)
  - Pneumonia [Unknown]
  - Deep vein thrombosis [Unknown]
  - Pulmonary embolism [Unknown]
  - Cardiac arrest [Unknown]
  - Acute kidney injury [Unknown]
  - Cerebrospinal fluid leakage [Unknown]
  - Spinal operation [Unknown]
  - Wound [Unknown]
  - Postoperative wound infection [Unknown]
  - Post procedural complication [Unknown]
  - Haematoma [Unknown]
  - Urinary tract infection [Unknown]
